FAERS Safety Report 16013120 (Version 1)
Quarter: 2019Q1

REPORT INFORMATION
  Report Type: Spontaneous
  Country: US (occurrence: US)
  Receive Date: 20190131
  Receipt Date: 20190131
  Transmission Date: 20190418
  Serious: No
  Sender: FDA-Public Use
  Company Number: None

PATIENT
  Age: 50 Year
  Sex: Female

DRUGS (4)
  1. NIFEDIPINE. [Concomitant]
     Active Substance: NIFEDIPINE
  2. SILDENAFIL TAB 20 MG [Suspect]
     Active Substance: SILDENAFIL
     Indication: PULMONARY ARTERIAL HYPERTENSION
     Route: 048
     Dates: start: 200401
  3. JANTOVEN [Concomitant]
     Active Substance: WARFARIN SODIUM
  4. TRACLEER [Concomitant]
     Active Substance: BOSENTAN

REACTIONS (1)
  - Palpitations [None]

NARRATIVE: CASE EVENT DATE: 20180101
